FAERS Safety Report 13904803 (Version 1)
Quarter: 2017Q3

REPORT INFORMATION
  Report Type: Spontaneous
  Country: CA (occurrence: None)
  Receive Date: 20170822
  Receipt Date: 20170822
  Transmission Date: 20171127
  Serious: Yes (Death, Hospitalization)
  Sender: FDA-Public Use
  Company Number: None

PATIENT
  Age: 22 Year
  Sex: Female
  Weight: 55.5 kg

DRUGS (5)
  1. VINCRISTINE SULFATE. [Suspect]
     Active Substance: VINCRISTINE SULFATE
     Dates: end: 20151230
  2. DEXAMETHASONE. [Suspect]
     Active Substance: DEXAMETHASONE
     Dates: end: 20151227
  3. MITOXANTRONE HYDROCHLORIDE. [Suspect]
     Active Substance: MITOXANTRONE HYDROCHLORIDE
     Dates: end: 20151205
  4. ONCASPAR [Suspect]
     Active Substance: PEGASPARGASE
     Dates: end: 20151223
  5. METHOTREXATE. [Suspect]
     Active Substance: METHOTREXATE
     Dates: end: 20151203

REACTIONS (11)
  - Septic shock [None]
  - Candida test positive [None]
  - Cardiac failure [None]
  - Multiple organ dysfunction syndrome [None]
  - Ammonia increased [None]
  - Citrobacter test positive [None]
  - Disseminated intravascular coagulation [None]
  - Electrocardiogram abnormal [None]
  - Mobility decreased [None]
  - Hepatic enzyme increased [None]
  - Atrial fibrillation [None]

NARRATIVE: CASE EVENT DATE: 20160109
